FAERS Safety Report 5446941-8 (Version None)
Quarter: 2007Q3

REPORT INFORMATION
  Report Type: 
  Country: None (occurrence: None)
  Receive Date: 20070907
  Receipt Date: 20070904
  Transmission Date: 20080115
  Serious: Yes (Congenital Anomaly)
  Sender: FDA-Public Use
  Company Number: US-MERCK-0708USA05869

PATIENT
  Sex: Female
  Weight: 3 kg

DRUGS (5)
  1. CRIXIVAN [Suspect]
     Indication: HIV INFECTION
     Route: 064
  2. LAMIVUDINE [Concomitant]
     Route: 064
  3. NEVIRAPINE [Concomitant]
     Route: 064
  4. STAVUDINE [Concomitant]
     Route: 064
  5. ZIDOVUDINE [Concomitant]
     Route: 064

REACTIONS (1)
  - MICROGNATHIA [None]
